FAERS Safety Report 21603670 (Version 2)
Quarter: 2022Q4

REPORT INFORMATION
  Report Type: Report from Study
  Country: IT (occurrence: IT)
  Receive Date: 20221116
  Receipt Date: 20221226
  Transmission Date: 20230112
  Serious: Yes (Other)
  Sender: FDA-Public Use
  Company Number: IT-002147023-NVSC2022IT240840

PATIENT
  Age: 61 Year
  Sex: Male

DRUGS (2)
  1. COSENTYX [Suspect]
     Active Substance: SECUKINUMAB
     Indication: Product used for unknown indication
     Dosage: 300 MG, QW (EVERY 7 DAYS)
     Route: 065
     Dates: start: 20221010
  2. COSENTYX [Suspect]
     Active Substance: SECUKINUMAB
     Dosage: 1 DOSAGE FORM, QMO (THE PATIENT REPORTED THAT NOW THEY ARE DOING ONE INJECTION EVERY 28 DAYS)
     Route: 065

REACTIONS (6)
  - Rheumatoid arthritis [Unknown]
  - Arthralgia [Unknown]
  - Injection site swelling [Unknown]
  - Device malfunction [Unknown]
  - Rash [Unknown]
  - Incorrect dose administered by device [Unknown]
